FAERS Safety Report 11058632 (Version 1)
Quarter: 2015Q2

REPORT INFORMATION
  Report Type: Report from Study
  Country: US (occurrence: None)
  Receive Date: 20150420
  Receipt Date: 20150420
  Transmission Date: 20150821
  Serious: No
  Sender: FDA-Public Use
  Company Number: AEGR001032

PATIENT
  Age: 64 Year
  Sex: Female
  Weight: 122 kg

DRUGS (2)
  1. WELCHOL (COLESEVALAM HYDROCHLORIDE) [Concomitant]
  2. JUXTAPID [Suspect]
     Active Substance: LOMITAPIDE MESYLATE
     Indication: DYSLIPIDAEMIA
     Route: 048
     Dates: start: 20141209

REACTIONS (7)
  - Liver function test abnormal [None]
  - Weight decreased [None]
  - Sciatica [None]
  - Constipation [None]
  - Blood creatinine increased [None]
  - Influenza [None]
  - Off label use [None]

NARRATIVE: CASE EVENT DATE: 20141209
